FAERS Safety Report 26088448 (Version 1)
Quarter: 2025Q4

REPORT INFORMATION
  Report Type: Report from Study
  Country: US (occurrence: US)
  Receive Date: 20251125
  Receipt Date: 20251125
  Transmission Date: 20260118
  Serious: Yes (Other)
  Sender: JAZZ
  Company Number: US-JAZZ PHARMACEUTICALS-2025-US-027007

PATIENT
  Sex: Female
  Weight: 86.168 kg

DRUGS (1)
  1. EPIDIOLEX [Suspect]
     Active Substance: CANNABIDIOL
     Indication: Product used for unknown indication
     Dosage: 4.3 MILLILITER, BID (9.98MG/KG/DAY)
     Dates: start: 20251104, end: 20251111

REACTIONS (1)
  - Seizure [Unknown]
